FAERS Safety Report 16015921 (Version 1)
Quarter: 2019Q1

REPORT INFORMATION
  Report Type: Report from Study
  Country: DE (occurrence: DE)
  Receive Date: 20190228
  Receipt Date: 20190228
  Transmission Date: 20190418
  Serious: Yes (Life-Threatening, Hospitalization, Other)
  Sender: FDA-Public Use
  Company Number: DE-ACCORD-108882

PATIENT
  Sex: Male
  Weight: 108 kg

DRUGS (3)
  1. RAMIPRIL. [Suspect]
     Active Substance: RAMIPRIL
     Indication: PRODUCT USED FOR UNKNOWN INDICATION
     Dosage: 10 MG, DAILY
     Route: 048
  2. AMLODIPINE [Suspect]
     Active Substance: AMLODIPINE BESYLATE
     Indication: PRODUCT USED FOR UNKNOWN INDICATION
     Dosage: 10 MG, DAILY
     Route: 065
  3. HUMIRA [Suspect]
     Active Substance: ADALIMUMAB
     Indication: PSORIASIS
     Route: 058
     Dates: start: 201412, end: 201712

REACTIONS (18)
  - Cerebral haemorrhage [Unknown]
  - Bone marrow failure [Unknown]
  - Fall [Unknown]
  - Musculoskeletal chest pain [Unknown]
  - Fatigue [Unknown]
  - Rib fracture [Unknown]
  - Injury [Unknown]
  - Immune thrombocytopenic purpura [Recovered/Resolved]
  - Fracture displacement [Unknown]
  - Hyperplasia [Unknown]
  - Intervertebral disc displacement [Unknown]
  - Lymphadenopathy [Unknown]
  - Vertebral osteophyte [Unknown]
  - Intervertebral disc space narrowing [Unknown]
  - Bile duct stone [Unknown]
  - Epistaxis [Unknown]
  - Marrow hyperplasia [Unknown]
  - Haematoma [Unknown]

NARRATIVE: CASE EVENT DATE: 201610
